FAERS Safety Report 25335102 (Version 1)
Quarter: 2025Q2

REPORT INFORMATION
  Report Type: Report from Study
  Country: BR (occurrence: BR)
  Receive Date: 20250520
  Receipt Date: 20250520
  Transmission Date: 20250716
  Serious: Yes (Hospitalization)
  Sender: ABBVIE
  Company Number: BR-ABBVIE-6282213

PATIENT
  Age: 16 Year
  Sex: Male
  Weight: 50 kg

DRUGS (1)
  1. RINVOQ [Suspect]
     Active Substance: UPADACITINIB
     Indication: Dermatitis atopic
     Route: 048

REACTIONS (12)
  - Dermatitis [Unknown]
  - Erythema [Recovering/Resolving]
  - Bronchitis [Recovering/Resolving]
  - Insomnia [Unknown]
  - Nervousness [Unknown]
  - Anxiety [Unknown]
  - Skin lesion [Unknown]
  - Skin hypertrophy [Unknown]
  - Dry skin [Unknown]
  - Skin irritation [Unknown]
  - Pruritus [Unknown]
  - Eye pruritus [Unknown]

NARRATIVE: CASE EVENT DATE: 20240101
